FAERS Safety Report 22699327 (Version 3)
Quarter: 2024Q4

REPORT INFORMATION
  Report Type: Report from Study
  Country: GB (occurrence: GB)
  Receive Date: 20230713
  Receipt Date: 20241126
  Transmission Date: 20250114
  Serious: Yes (Hospitalization, Other)
  Sender: NOVARTIS
  Company Number: GB-002147023-NVSC2023GB154376

PATIENT
  Sex: Male
  Weight: 78 kg

DRUGS (2)
  1. COSENTYX [Suspect]
     Active Substance: SECUKINUMAB
     Indication: Psoriasis
     Dosage: 300 MG, QMO (EVERY 4 WEEKS) (ROUTE: INJECTION NOS)
     Route: 065
     Dates: start: 20190301, end: 20230323
  2. ENSTILAR [Concomitant]
     Active Substance: BETAMETHASONE DIPROPIONATE\CALCIPOTRIENE HYDRATE
     Indication: Product used for unknown indication
     Dosage: UNK
     Route: 065
     Dates: start: 20200324

REACTIONS (6)
  - Ischaemia [Recovered/Resolved]
  - Gangrene [Unknown]
  - Ulcer [Unknown]
  - Coronary artery occlusion [Unknown]
  - Acute kidney injury [Unknown]
  - Compartment syndrome [Unknown]

NARRATIVE: CASE EVENT DATE: 20230303
